FAERS Safety Report 10498042 (Version 2)
Quarter: 2014Q4

REPORT INFORMATION
  Report Type: Other
  Country: US (occurrence: US)
  Receive Date: 20141006
  Receipt Date: 20141006
  Transmission Date: 20150528
  Serious: Yes (Other)
  Sender: FDA-Public Use
  Company Number: US-ACORDA-ACO_104126_2014

PATIENT
  Sex: Female
  Weight: 63.49 kg

DRUGS (4)
  1. TECFIDERA [Suspect]
     Active Substance: DIMETHYL FUMARATE
     Indication: MULTIPLE SCLEROSIS
     Dosage: 240 MG, BID
     Route: 048
     Dates: start: 2013
  2. VITAMINS [Suspect]
     Active Substance: VITAMINS
     Indication: PRODUCT USED FOR UNKNOWN INDICATION
     Dosage: UNK
     Route: 048
  3. AMPYRA [Suspect]
     Active Substance: DALFAMPRIDINE
     Indication: GAIT DISTURBANCE
     Dosage: 10 MG, BID
     Route: 048
     Dates: start: 20140521, end: 201407
  4. ANTIEMETICS AND ANTINAUSEANTS [Suspect]
     Active Substance: UNSPECIFIED INGREDIENT
     Indication: ANTIEMETIC SUPPORTIVE CARE
     Dosage: UNK
     Route: 042
     Dates: start: 20140918

REACTIONS (5)
  - Oesophageal carcinoma [Unknown]
  - Flushing [Unknown]
  - Drug ineffective [Unknown]
  - Nausea [Recovered/Resolved]
  - Feeling hot [Unknown]

NARRATIVE: CASE EVENT DATE: 2014
